FAERS Safety Report 14211382 (Version 1)
Quarter: 2017Q4

REPORT INFORMATION
  Report Type: Spontaneous
  Country: US (occurrence: US)
  Receive Date: 20171121
  Receipt Date: 20171121
  Transmission Date: 20180321
  Serious: No
  Sender: FDA-Public Use
  Company Number: US-009507513-1710USA016198

PATIENT
  Sex: Female

DRUGS (4)
  1. TRULICITY [Suspect]
     Active Substance: DULAGLUTIDE
  2. ACTOS [Suspect]
     Active Substance: PIOGLITAZONE HYDROCHLORIDE
  3. JANUVIA [Suspect]
     Active Substance: SITAGLIPTIN PHOSPHATE
     Route: 048
  4. GLIPIZIDE. [Suspect]
     Active Substance: GLIPIZIDE

REACTIONS (2)
  - Blood glucose abnormal [Not Recovered/Not Resolved]
  - Drug ineffective [Not Recovered/Not Resolved]
